FAERS Safety Report 13185787 (Version 3)
Quarter: 2017Q2

REPORT INFORMATION
  Report Type: Spontaneous
  Country: US (occurrence: US)
  Receive Date: 20170203
  Receipt Date: 20170428
  Transmission Date: 20170830
  Serious: Yes (Hospitalization)
  Sender: FDA-Public Use
  Company Number: US-PFIZER INC-2017041584

PATIENT
  Age: 18 Year
  Sex: Male
  Weight: 81.65 kg

DRUGS (3)
  1. CABERGOLINE. [Suspect]
     Active Substance: CABERGOLINE
     Indication: PROLACTIN-PRODUCING PITUITARY TUMOUR
     Dosage: 0.25 MG, 2X/WEEK
     Route: 048
     Dates: start: 20161117
  2. CABERGOLINE. [Suspect]
     Active Substance: CABERGOLINE
     Indication: PRIMARY HYPOGONADISM
  3. CABERGOLINE. [Suspect]
     Active Substance: CABERGOLINE
     Indication: PITUITARY TUMOUR

REACTIONS (10)
  - Decreased appetite [Not Recovered/Not Resolved]
  - Apathy [Not Recovered/Not Resolved]
  - Therapeutic response unexpected [Not Recovered/Not Resolved]
  - Libido increased [Not Recovered/Not Resolved]
  - Dysphonia [Recovered/Resolved]
  - Mood altered [Not Recovered/Not Resolved]
  - Energy increased [Not Recovered/Not Resolved]
  - Weight decreased [Not Recovered/Not Resolved]
  - Hypertonia [Recovered/Resolved]
  - Blood testosterone increased [Not Recovered/Not Resolved]

NARRATIVE: CASE EVENT DATE: 201611
